FAERS Safety Report 15469515 (Version 1)
Quarter: 2018Q4

REPORT INFORMATION
  Report Type: Spontaneous
  Country: JP (occurrence: JP)
  Receive Date: 20181005
  Receipt Date: 20181005
  Transmission Date: 20190205
  Serious: Yes (Hospitalization)
  Sender: FDA-Public Use
  Company Number: JP-JNJFOC-20180915681

PATIENT
  Age: 61 Year
  Sex: Male

DRUGS (2)
  1. TRAMADOL HYDROCHLORIDE AND ACETAMINOPHEN [Suspect]
     Active Substance: ACETAMINOPHEN\TRAMADOL HYDROCHLORIDE
     Indication: PAIN
     Route: 048
  2. TRAMAL [Concomitant]
     Active Substance: TRAMADOL
     Route: 065

REACTIONS (2)
  - Hospitalisation [Unknown]
  - Tooth erosion [Unknown]

NARRATIVE: CASE EVENT DATE: 201808
